FAERS Safety Report 23447574 (Version 1)
Quarter: 2024Q1

REPORT INFORMATION
  Report Type: Report from Study
  Country: US (occurrence: None)
  Receive Date: 20240126
  Receipt Date: 20240126
  Transmission Date: 20240410
  Serious: Yes (Other)
  Sender: FDA-Public Use
  Company Number: 2024A014809

PATIENT
  Sex: Male

DRUGS (1)
  1. FARXIGA [Suspect]
     Active Substance: DAPAGLIFLOZIN PROPANEDIOL
     Route: 048

REACTIONS (10)
  - Neoplasm malignant [Unknown]
  - Blood disorder [Unknown]
  - Oesophageal disorder [Unknown]
  - Dyskinesia oesophageal [Unknown]
  - Atrioventricular block [Unknown]
  - Cerebrovascular accident [Unknown]
  - Staphylococcal infection [Unknown]
  - Fungal infection [Unknown]
  - Blindness [Unknown]
  - Oesophageal mass [Unknown]
